FAERS Safety Report 13857948 (Version 2)
Quarter: 2025Q4

REPORT INFORMATION
  Report Type: Spontaneous
  Country: US (occurrence: US)
  Receive Date: 20170811
  Receipt Date: 20251204
  Transmission Date: 20260118
  Serious: Yes (Hospitalization, Other)
  Sender: ALKEM
  Company Number: None

PATIENT
  Age: 47 Year
  Sex: Female

DRUGS (6)
  1. MYCOPHENOLATE MOFETIL [Suspect]
     Active Substance: MYCOPHENOLATE MOFETIL
     Indication: Immunosuppression
     Dosage: UNK
     Route: 065
  2. MYCOPHENOLATE MOFETIL [Suspect]
     Active Substance: MYCOPHENOLATE MOFETIL
     Dosage: 3 G, QD (INCREASED)
     Route: 065
     Dates: start: 201507
  3. BELIMUMAB [Suspect]
     Active Substance: BELIMUMAB
     Indication: Product used for unknown indication
     Dosage: UNK (EVERY 1 MONTH)
     Route: 065
     Dates: start: 2012
  4. CYCLOPHOSPHAMIDE [Suspect]
     Active Substance: CYCLOPHOSPHAMIDE
     Indication: Immunosuppression
     Dosage: UNK
     Route: 065
  5. PREDNISONE [Suspect]
     Active Substance: PREDNISONE
     Indication: Immunosuppression
     Dosage: 1 MILLIGRAM/KILOGRAM (HIGH DOSE STEROID)
     Route: 065
     Dates: start: 2012
  6. PREDNISONE [Suspect]
     Active Substance: PREDNISONE
     Dosage: UNK (TAPERED)
     Route: 065

REACTIONS (1)
  - Cytomegalovirus infection [Recovering/Resolving]
